FAERS Safety Report 18802099 (Version 4)
Quarter: 2021Q1

REPORT INFORMATION
  Report Type: Spontaneous
  Country: PL (occurrence: PL)
  Receive Date: 20210128
  Receipt Date: 20210223
  Transmission Date: 20210419
  Serious: Yes (Hospitalization, Other)
  Sender: FDA-Public Use
  Company Number: NVSC2020PL313439

PATIENT
  Age: 46 Year
  Sex: Female

DRUGS (10)
  1. DASATINIB. [Suspect]
     Active Substance: DASATINIB
     Indication: CHRONIC MYELOID LEUKAEMIA
     Dosage: UNK
     Route: 065
  2. RAMIPRIL. [Suspect]
     Active Substance: RAMIPRIL
     Indication: HYPERTENSION
     Dosage: 2.5 MG, QD
     Route: 065
  3. CLINDAMYCIN PHOSPHATE. [Suspect]
     Active Substance: CLINDAMYCIN PHOSPHATE
     Indication: ERYSIPELAS
     Dosage: UNK
     Route: 042
  4. PENICILLIN G [Suspect]
     Active Substance: PENICILLIN G
     Indication: ERYSIPELAS
     Dosage: UNK
     Route: 065
  5. CLEMASTINE FUMARATE. [Suspect]
     Active Substance: CLEMASTINE FUMARATE
     Indication: URTICARIA
     Dosage: UNK
     Route: 065
  6. RAMIPRIL. [Suspect]
     Active Substance: RAMIPRIL
     Indication: BLOOD PRESSURE INCREASED
  7. HYDROXYZINE [Suspect]
     Active Substance: HYDROXYZINE HYDROCHLORIDE
     Indication: URTICARIA
     Dosage: UNK
     Route: 065
  8. DEXAMETHASONE. [Suspect]
     Active Substance: DEXAMETHASONE
     Indication: URTICARIA
     Dosage: UNK
     Route: 065
  9. LORATADINE. [Concomitant]
     Active Substance: LORATADINE
     Indication: ANGIOEDEMA
     Dosage: 10 MG
     Route: 065
  10. AZITHROMYCIN ANHYDROUS. [Concomitant]
     Active Substance: AZITHROMYCIN ANHYDROUS
     Indication: ANTIBIOTIC THERAPY
     Dosage: 500 MG
     Route: 065

REACTIONS (5)
  - Tongue oedema [Unknown]
  - Blood pressure increased [Unknown]
  - Drug ineffective [Unknown]
  - Erysipelas [Recovering/Resolving]
  - Swollen tongue [Recovered/Resolved]
